FAERS Safety Report 5595274-8 (Version None)
Quarter: 2008Q1

REPORT INFORMATION
  Report Type: 
  Country: None (occurrence: None)
  Receive Date: 20080117
  Receipt Date: 20080108
  Transmission Date: 20080703
  Serious: Yes (Other)
  Sender: FDA-Public Use
  Company Number: US-PFIZER INC-2008002492

PATIENT
  Sex: Male
  Weight: 136.36 kg

DRUGS (3)
  1. CHANTIX [Suspect]
     Indication: SMOKING CESSATION THERAPY
     Dates: start: 20071125, end: 20070101
  2. PRILOSEC [Concomitant]
  3. ALEVE [Concomitant]

REACTIONS (2)
  - INNER EAR DISORDER [None]
  - TINNITUS [None]
